FAERS Safety Report 25596306 (Version 1)
Quarter: 2025Q3

REPORT INFORMATION
  Report Type: Spontaneous
  Country: US (occurrence: US)
  Receive Date: 20250723
  Receipt Date: 20250723
  Transmission Date: 20251020
  Serious: No
  Sender: Kenvue
  Company Number: US-KENVUE-20250702440

PATIENT
  Sex: Female

DRUGS (3)
  1. CHILDRENS ZYRTEC HIVES RELIEF [Suspect]
     Active Substance: CETIRIZINE HYDROCHLORIDE
     Indication: Sneezing
     Dosage: DOSE RIGHT BEFORE BED EVERY EVENING, ONCE A DAY
     Route: 065
  2. CHILDRENS ZYRTEC HIVES RELIEF [Suspect]
     Active Substance: CETIRIZINE HYDROCHLORIDE
     Indication: Eye pruritus
  3. CHILDRENS ZYRTEC HIVES RELIEF [Suspect]
     Active Substance: CETIRIZINE HYDROCHLORIDE
     Indication: Nasal congestion

REACTIONS (2)
  - Product use in unapproved indication [Unknown]
  - Therapeutic response unexpected [Unknown]
